FAERS Safety Report 4436248-X (Version None)
Quarter: 2004Q3

REPORT INFORMATION
  Report Type: 
  Country: None (occurrence: None)
  Receive Date: 20040830
  Receipt Date: 20040610
  Transmission Date: 20050211
  Serious: Yes (Other)
  Sender: FDA-Public Use
  Company Number: US-BRISTOL-MYERS SQUIBB COMPANY-12612164

PATIENT
  Sex: Female

DRUGS (3)
  1. ERBITUX [Suspect]
     Route: 042
     Dates: start: 20040501, end: 20040501
  2. AUGMENTIN '125' [Suspect]
  3. DOXYCYCLINE [Suspect]

REACTIONS (3)
  - BURNING SENSATION [None]
  - RASH [None]
  - RASH ERYTHEMATOUS [None]
